FAERS Safety Report 6348536-0 (Version None)
Quarter: 2009Q3

REPORT INFORMATION
  Report Type: 
  Country: None (occurrence: None)
  Receive Date: 20090911
  Receipt Date: 20090902
  Transmission Date: 20100115
  Serious: Yes (Hospitalization)
  Sender: FDA-Public Use
  Company Number: JP-JNJFOC-20090901975

PATIENT
  Sex: Male
  Weight: 64.3 kg

DRUGS (6)
  1. FENTANYL [Suspect]
     Indication: PAIN
     Route: 062
     Dates: start: 20090803, end: 20090831
  2. SENNOSIDE A-B [Concomitant]
     Indication: PROPHYLAXIS
  3. DOMPERIDONE [Concomitant]
     Indication: PROPHYLAXIS
  4. MOSAPRIDE CITRATE [Concomitant]
     Indication: PROPHYLAXIS
  5. METOCLOPRAMIDE [Concomitant]
     Indication: PROPHYLAXIS
  6. RIZATRIPTAN BENZOATE [Concomitant]
     Indication: ARACHNOID CYST

REACTIONS (3)
  - DECREASED APPETITE [None]
  - DEHYDRATION [None]
  - VOMITING [None]
